FAERS Safety Report 9459064 (Version 3)
Quarter: 2013Q4

REPORT INFORMATION
  Report Type: Spontaneous
  Country: US (occurrence: US)
  Receive Date: 20130814
  Receipt Date: 20131021
  Transmission Date: 20140711
  Serious: Yes (Other)
  Sender: FDA-Public Use
  Company Number: US-PFIZER INC-2013232694

PATIENT
  Age: 69 Year
  Sex: Female

DRUGS (2)
  1. PREMARIN [Suspect]
     Indication: HOT FLUSH
     Dosage: 1.25 MG, 1X/DAY
     Route: 048
     Dates: start: 1993
  2. PREMARIN [Suspect]
     Indication: PREMENSTRUAL SYNDROME

REACTIONS (7)
  - Coronary artery occlusion [Recovered/Resolved]
  - Cardiac disorder [Unknown]
  - Ulcer [Unknown]
  - Gastric disorder [Unknown]
  - Gastrooesophageal reflux disease [Unknown]
  - Migraine [Unknown]
  - Blood potassium decreased [Unknown]
